FAERS Safety Report 15016317 (Version 4)
Quarter: 2021Q4

REPORT INFORMATION
  Report Type: Report from Study
  Country: DE (occurrence: DE)
  Receive Date: 20180615
  Receipt Date: 20211101
  Transmission Date: 20220303
  Serious: Yes (Other)
  Sender: FDA-Public Use
  Company Number: DE-BRISTOL-MYERS SQUIBB COMPANY-BMS-2018-053820

PATIENT
  Age: 6 Year
  Sex: Male
  Weight: 17.1 kg

DRUGS (9)
  1. APIXABAN [Suspect]
     Active Substance: APIXABAN
     Indication: Thrombosis prophylaxis
     Dosage: 4.8 MG/DAILY (2X2.4MG)
     Route: 048
     Dates: start: 20171028
  2. APIXABAN [Suspect]
     Active Substance: APIXABAN
     Dosage: 5 MG/DAILY (2X2.5MG)
     Route: 048
     Dates: start: 20180430
  3. APIXABAN [Suspect]
     Active Substance: APIXABAN
     Dosage: 1 DF=2X2MG(2X4MINI TABLETS)
     Route: 048
  4. HYDROCHLOROTHIAZIDE [Concomitant]
     Active Substance: HYDROCHLOROTHIAZIDE
     Indication: Product used for unknown indication
     Dosage: UNK
     Route: 065
     Dates: start: 20150717
  5. SPIRONOLACTONE [Concomitant]
     Active Substance: SPIRONOLACTONE
     Indication: Product used for unknown indication
     Dosage: UNK
     Route: 065
     Dates: start: 20150717
  6. MAGNESIUM [Concomitant]
     Active Substance: MAGNESIUM
     Indication: Product used for unknown indication
     Dosage: UNK
     Route: 065
     Dates: start: 20160416
  7. CARVEDILOL [Concomitant]
     Active Substance: CARVEDILOL
     Indication: Product used for unknown indication
     Dosage: UNK
     Route: 065
     Dates: start: 20160704
  8. SILDENAFIL [Concomitant]
     Active Substance: SILDENAFIL
     Indication: Product used for unknown indication
     Dosage: UNK
     Route: 065
     Dates: start: 20180423
  9. LASIX [Concomitant]
     Active Substance: FUROSEMIDE
     Indication: Product used for unknown indication
     Dosage: UNK
     Route: 065
     Dates: start: 20180502

REACTIONS (1)
  - Incorrect dose administered [Recovered/Resolved]

NARRATIVE: CASE EVENT DATE: 20180430
